FAERS Safety Report 7119837-3 (Version None)
Quarter: 2010Q4

REPORT INFORMATION
  Report Type: 
  Country: None (occurrence: None)
  Receive Date: 20101123
  Receipt Date: 20100903
  Transmission Date: 20110411
  Serious: No
  Sender: FDA-Public Use
  Company Number: US-BRISTOL-MYERS SQUIBB COMPANY-15272206

PATIENT
  Age: 37 Year
  Sex: Male

DRUGS (2)
  1. ONGLYZA [Suspect]
     Dates: start: 20100730
  2. METFORMIN HCL [Suspect]
     Dates: start: 20100730

REACTIONS (1)
  - URINARY TRACT INFECTION [None]
